FAERS Safety Report 6386080-5 (Version None)
Quarter: 2009Q4

REPORT INFORMATION
  Report Type: 
  Country: None (occurrence: None)
  Receive Date: 20091002
  Receipt Date: 20081113
  Transmission Date: 20100525
  Serious: No
  Sender: FDA-Public Use
  Company Number: US-ASTRAZENECA-2008UW25422

PATIENT
  Age: 51 Year
  Sex: Female
  Weight: 82.1 kg

DRUGS (5)
  1. ARIMIDEX [Suspect]
     Indication: BREAST CANCER
     Route: 048
  2. EFFEXOR [Concomitant]
  3. CALCIUM [Concomitant]
  4. TRAZODONE [Concomitant]
  5. MULTI-VITAMINS [Concomitant]

REACTIONS (3)
  - ACNE [None]
  - HOT FLUSH [None]
  - WEIGHT INCREASED [None]
